FAERS Safety Report 20560682 (Version 2)
Quarter: 2022Q1

REPORT INFORMATION
  Report Type: Spontaneous
  Country: US (occurrence: US)
  Receive Date: 20220307
  Receipt Date: 20220311
  Transmission Date: 20220423
  Serious: No
  Sender: FDA-Public Use
  Company Number: US-Blueprint Medicines Corporation-SP-US-2022-000578

PATIENT
  Age: 79 Year
  Sex: Male

DRUGS (1)
  1. AYVAKIT [Suspect]
     Active Substance: AVAPRITINIB
     Indication: Gastrointestinal stromal tumour
     Route: 048
     Dates: start: 20211204

REACTIONS (8)
  - Gait disturbance [Unknown]
  - Fall [Unknown]
  - Balance disorder [Unknown]
  - Malaise [Unknown]
  - Dysphonia [Unknown]
  - Speech disorder [Unknown]
  - Confusional state [Unknown]
  - Dizziness [Unknown]
